FAERS Safety Report 17462341 (Version 4)
Quarter: 2021Q3

REPORT INFORMATION
  Report Type: Report from Study
  Country: GR (occurrence: GR)
  Receive Date: 20200226
  Receipt Date: 20210716
  Transmission Date: 20211014
  Serious: Yes (Other)
  Sender: FDA-Public Use
  Company Number: NVSC2020GR044685

PATIENT
  Age: 74 Year
  Sex: Male
  Weight: 55 kg

DRUGS (5)
  1. OMEPRAZOLE. [Concomitant]
     Active Substance: OMEPRAZOLE
     Indication: GASTRITIS
     Dosage: UNK
     Route: 065
     Dates: start: 20190601
  2. FERROUS GLUCONATE [Concomitant]
     Active Substance: FERROUS GLUCONATE
     Indication: ANAEMIA
     Dosage: UNK
     Route: 065
     Dates: start: 20190601
  3. ACLIDINIUM BROMIDE. [Concomitant]
     Active Substance: ACLIDINIUM BROMIDE
     Indication: CHRONIC OBSTRUCTIVE PULMONARY DISEASE
     Dosage: UNK
     Route: 065
     Dates: start: 20100101
  4. PARACETAMOL/CODEINE [Concomitant]
     Active Substance: ACETAMINOPHEN\CODEINE PHOSPHATE
     Indication: COUGH
     Dosage: UNK
     Route: 065
     Dates: start: 20200108
  5. CANAKINUMAB. [Suspect]
     Active Substance: CANAKINUMAB
     Indication: NON-SMALL CELL LUNG CANCER
     Dosage: 1 DF, Q3W
     Route: 058
     Dates: start: 20191016, end: 20200108

REACTIONS (1)
  - Tuberculosis [Recovered/Resolved]

NARRATIVE: CASE EVENT DATE: 20200207
